FAERS Safety Report 7019715-4 (Version None)
Quarter: 2010Q3

REPORT INFORMATION
  Report Type: 
  Country: None (occurrence: None)
  Receive Date: 20100929
  Receipt Date: 20100921
  Transmission Date: 20110219
  Serious: Yes (Disabling)
  Sender: FDA-Public Use
  Company Number: GB-SHIRE-CQT2-2009-00039

PATIENT

DRUGS (8)
  1. HYDROXYUREA [Suspect]
     Indication: ESSENTIAL THROMBOCYTHAEMIA
     Dosage: 714 MG, 1X/DAY:QD
     Route: 048
     Dates: start: 20080612, end: 20100126
  2. HYDROXYUREA [Suspect]
     Dosage: 750 MG, 1X/DAY:QD
     Route: 048
     Dates: start: 19940422, end: 20080612
  3. HYDROXYUREA [Suspect]
     Dosage: 857 MG, 1X/DAY:QD
     Route: 048
     Dates: start: 20100126
  4. ACETYLSALICYLIC ACID SRT [Suspect]
     Indication: ESSENTIAL THROMBOCYTHAEMIA
     Dosage: 75 MG, 1X/DAY:QD
     Route: 048
     Dates: start: 20070406, end: 20100323
  5. ACETYLSALICYLIC ACID SRT [Suspect]
     Dosage: 75 MG, 1X/DAY:QD
     Route: 048
     Dates: start: 20100615
  6. ANAGRELIDE HCL [Suspect]
     Indication: ESSENTIAL THROMBOCYTHAEMIA
     Dosage: .5 MG, 1X/DAY:QD
     Route: 048
     Dates: start: 20091201, end: 20100126
  7. CLOPIDOGREL [Suspect]
     Indication: ESSENTIAL THROMBOCYTHAEMIA
     Dosage: 75 MG, 1X/DAY:QD
     Route: 048
     Dates: start: 20100123, end: 20100615
  8. ALLOPURINOL [Concomitant]
     Indication: HYPERURICAEMIA
     Dosage: 300 MG, 1X/DAY:QD
     Route: 048
     Dates: start: 20080101

REACTIONS (1)
  - MOUTH ULCERATION [None]
